FAERS Safety Report 22526334 (Version 1)
Quarter: 2023Q2

REPORT INFORMATION
  Report Type: Report from Study
  Country: IL (occurrence: IL)
  Receive Date: 20230606
  Receipt Date: 20230606
  Transmission Date: 20230721
  Serious: Yes (Hospitalization)
  Sender: FDA-Public Use
  Company Number: IL-JNJFOC-20211129561

PATIENT
  Age: 74 Year
  Sex: Male
  Weight: 69 kg

DRUGS (27)
  1. TECLISTAMAB [Suspect]
     Active Substance: TECLISTAMAB
     Indication: Plasma cell myeloma
     Dosage: STEP-UP DOSE 2
     Route: 058
     Dates: start: 20211031, end: 20211031
  2. TECLISTAMAB [Suspect]
     Active Substance: TECLISTAMAB
     Dosage: STEP-UP DOSE 3
     Route: 058
     Dates: start: 20211102, end: 20211102
  3. TECLISTAMAB [Suspect]
     Active Substance: TECLISTAMAB
     Dosage: C1D1
     Route: 058
     Dates: start: 20211104, end: 20211104
  4. ASPIRIN [Concomitant]
     Active Substance: ASPIRIN
     Indication: Myocardial ischaemia
     Route: 048
  5. ZOVIRAX [Concomitant]
     Active Substance: ACYCLOVIR
     Indication: Antiviral prophylaxis
     Route: 048
     Dates: end: 20220102
  6. PROLOL [PROPRANOLOL HYDROCHLORIDE] [Concomitant]
     Indication: Myocardial ischaemia
     Route: 048
  7. BROTIZOLAM [Concomitant]
     Active Substance: BROTIZOLAM
     Indication: Insomnia
     Route: 048
  8. AMANTADINE [Concomitant]
     Active Substance: AMANTADINE
     Indication: Parkinson^s disease
     Route: 048
  9. BEVITEX [CYANOCOBALAMIN] [Concomitant]
     Indication: Anaemia prophylaxis
     Route: 060
  10. RECLAST [Concomitant]
     Active Substance: ZOLEDRONIC ACID
     Indication: Osteoporosis prophylaxis
     Route: 042
  11. CODEINE PHOSPHATE [Concomitant]
     Active Substance: CODEINE PHOSPHATE
     Indication: Back pain
     Route: 048
  12. METFORMIN HYDROCHLORIDE [Concomitant]
     Active Substance: METFORMIN HYDROCHLORIDE
     Indication: Type 2 diabetes mellitus
     Route: 048
  13. MAGNESIUM DIASPORAL [MAGNESIUM CITRATE] [Concomitant]
     Indication: Mineral supplementation
     Route: 048
  14. DIPYRONE [Concomitant]
     Active Substance: DIPYRONE
     Indication: Pyrexia
     Route: 048
     Dates: start: 20211103, end: 20211103
  15. MICONAZOLE NITRATE [Concomitant]
     Active Substance: MICONAZOLE NITRATE
     Indication: Oral candidiasis
     Dosage: 1
     Route: 062
     Dates: start: 20211029, end: 20211109
  16. MAGNESIUM OXIDE [Concomitant]
     Active Substance: MAGNESIUM OXIDE
     Indication: Mineral supplementation
     Route: 048
     Dates: start: 20211031
  17. NALOXONE HYDROCHLORIDE\OXYCODONE HYDROCHLORIDE [Concomitant]
     Active Substance: NALOXONE HYDROCHLORIDE\OXYCODONE HYDROCHLORIDE
     Indication: Non-cardiac chest pain
     Route: 048
     Dates: start: 20211031, end: 20211031
  18. NALOXONE HYDROCHLORIDE\OXYCODONE HYDROCHLORIDE [Concomitant]
     Active Substance: NALOXONE HYDROCHLORIDE\OXYCODONE HYDROCHLORIDE
     Route: 048
     Dates: start: 20211101, end: 20211106
  19. NALOXONE HYDROCHLORIDE\OXYCODONE HYDROCHLORIDE [Concomitant]
     Active Substance: NALOXONE HYDROCHLORIDE\OXYCODONE HYDROCHLORIDE
     Route: 048
     Dates: start: 20211106, end: 20211109
  20. ALLOPURINOL [Concomitant]
     Active Substance: ALLOPURINOL
     Indication: Prophylaxis
     Route: 048
     Dates: start: 20211031, end: 20211107
  21. SEVELAMER [Concomitant]
     Active Substance: SEVELAMER
     Indication: Prophylaxis
     Route: 048
     Dates: start: 20211031, end: 20211109
  22. DIPYRONE [Concomitant]
     Active Substance: DIPYRONE
     Indication: Non-cardiac chest pain
     Route: 048
     Dates: start: 20211101, end: 20211101
  23. DIPYRONE [Concomitant]
     Active Substance: DIPYRONE
     Route: 048
     Dates: start: 20211103, end: 20211103
  24. POLYETHYLENE GLYCOL 4000 [Concomitant]
     Active Substance: POLYETHYLENE GLYCOL 4000
     Indication: Constipation
     Route: 048
     Dates: start: 20211103, end: 20211103
  25. OMEPRAZOLE [Concomitant]
     Active Substance: OMEPRAZOLE
     Indication: Prophylaxis
     Route: 048
     Dates: start: 20211104, end: 20211104
  26. AVILAC [LACTULOSE] [Concomitant]
     Indication: Constipation
     Route: 048
     Dates: start: 20211104, end: 20211104
  27. NORMALAX [BISACODYL] [Concomitant]
     Indication: Constipation
     Route: 048
     Dates: start: 20211103, end: 20211103

REACTIONS (1)
  - Pyrexia [Recovered/Resolved]

NARRATIVE: CASE EVENT DATE: 20211106
